FAERS Safety Report 4389573-5 (Version None)
Quarter: 2004Q2

REPORT INFORMATION
  Report Type: 
  Country: None (occurrence: None)
  Receive Date: 20040629
  Receipt Date: 20040311
  Transmission Date: 20050107
  Serious: Yes (Other)
  Sender: FDA-Public Use
  Company Number: US-JNJFOC-20040302871

PATIENT
  Sex: Male

DRUGS (1)
  1. DURAGESIC [Suspect]
     Dosage: INTRAVENOUS
     Route: 042

REACTIONS (1)
  - DRUG ABUSER [None]
